FAERS Safety Report 12067795 (Version 1)
Quarter: 2016Q1

REPORT INFORMATION
  Report Type: Spontaneous
  Country: US (occurrence: US)
  Receive Date: 20160211
  Receipt Date: 20160211
  Transmission Date: 20160526
  Serious: No
  Sender: FDA-Public Use
  Company Number: US-SMITH AND NEPHEW, INC-2015SMT00065

PATIENT
  Age: 63 Year
  Sex: Female
  Weight: 113.38 kg

DRUGS (5)
  1. REGRANEX [Suspect]
     Active Substance: BECAPLERMIN
     Indication: SKIN ULCER
     Dosage: 1 DOSAGE UNITS, ONCE
     Route: 061
     Dates: start: 20150416, end: 20150416
  2. UNSPECIFIED INSULIN [Concomitant]
     Active Substance: INSULIN NOS
  3. UNSPECIFIED CHOLESTEROL MEDICATION(S) [Concomitant]
  4. UNSPECIFIED STOMACH MEDICATION(S) [Concomitant]
  5. UNSPECIFIED BLOOD PRESSURE MEDICATION(S) [Concomitant]

REACTIONS (3)
  - Application site irritation [Recovering/Resolving]
  - Application site pain [Recovering/Resolving]
  - Hypersensitivity [Recovering/Resolving]

NARRATIVE: CASE EVENT DATE: 201504
